FAERS Safety Report 24996440 (Version 1)
Quarter: 2025Q1

REPORT INFORMATION
  Report Type: Report from Study
  Country: US (occurrence: US)
  Receive Date: 20250221
  Receipt Date: 20250221
  Transmission Date: 20250409
  Serious: Yes (Hospitalization, Other)
  Sender: NOVARTIS
  Company Number: US-002147023-NVSC2024US074273

PATIENT
  Sex: Female
  Weight: 59.51 kg

DRUGS (14)
  1. ENTRESTO [Suspect]
     Active Substance: SACUBITRIL\VALSARTAN
     Indication: Cardiomyopathy
     Dosage: 24 MG OF SACUBITRIL AND 26 MG OF VALSARTAN, BID
     Route: 048
     Dates: start: 20240919
  2. ENTRESTO [Suspect]
     Active Substance: SACUBITRIL\VALSARTAN
     Indication: Heart failure with reduced ejection fraction
  3. ASPIRIN [Concomitant]
     Active Substance: ASPIRIN
     Indication: Product used for unknown indication
     Dosage: 1 DOSAGE FORM (CHEWABLE), QD
     Route: 048
  4. B 12 [Concomitant]
     Indication: Product used for unknown indication
     Dosage: 1 DOSAGE FORM (1000 MCG) (UNDER THE TONGUE AND ALLOW TO DISSOLVE), QD
     Route: 060
  5. CALCIUM [Concomitant]
     Active Substance: CALCIUM
     Indication: Product used for unknown indication
     Dosage: 1 DOSAGE FORM (CHEWABLE), BID (EVERY 28 DAYS GET IV W/ CALCIUM)
     Route: 048
  6. DEXAMETHASONE [Concomitant]
     Active Substance: DEXAMETHASONE
     Indication: Product used for unknown indication
     Route: 048
  7. FARXIGA [Concomitant]
     Active Substance: DAPAGLIFLOZIN PROPANEDIOL
     Indication: Product used for unknown indication
     Dosage: 1 DOSAGE FORM, QD
     Route: 048
  8. FARXIGA [Concomitant]
     Active Substance: DAPAGLIFLOZIN PROPANEDIOL
     Route: 065
  9. IRON [Concomitant]
     Active Substance: IRON
     Indication: Product used for unknown indication
     Dosage: 1 DOSAGE FORM (65 FE), BID
     Route: 048
  10. KETOCONAZOLE [Concomitant]
     Active Substance: KETOCONAZOLE
     Indication: Product used for unknown indication
     Dosage: 1 APPLICATION (EXTERNALLY), QD (YEAST ON CHEST AREA)
     Route: 065
  11. VITAMINS [Concomitant]
     Active Substance: VITAMINS
     Indication: Product used for unknown indication
     Dosage: 1 DOSAGE FORM, QD
     Route: 048
  12. ONDANSETRON [Concomitant]
     Active Substance: ONDANSETRON
     Indication: Product used for unknown indication
     Dosage: 1 DOSAGE FORM, QD (ON THE TONGUE AND ALLOW TO DISSOLVE)
     Route: 048
  13. SUCRALFATE [Concomitant]
     Active Substance: SUCRALFATE
     Indication: Product used for unknown indication
     Dosage: 1 DOSAGE FORM, BID (ON AN EMPTY STOMACH)
     Route: 048
  14. VITAMIN D3 [Concomitant]
     Active Substance: CHOLECALCIFEROL
     Indication: Product used for unknown indication
     Route: 065

REACTIONS (14)
  - Hypotension [Unknown]
  - Dizziness [Unknown]
  - Fall [Unknown]
  - Neoplasm malignant [Unknown]
  - Deep vein thrombosis [Unknown]
  - Cardiomyopathy [Unknown]
  - Memory impairment [Not Recovered/Not Resolved]
  - Cerebral disorder [Unknown]
  - Muscular weakness [Unknown]
  - Balance disorder [Unknown]
  - Ejection fraction abnormal [Unknown]
  - Bundle branch block left [Unknown]
  - Panic attack [Unknown]
  - Product use in unapproved indication [Unknown]
